FAERS Safety Report 9988802 (Version 1)
Quarter: 2013Q4

REPORT INFORMATION
  Report Type: Spontaneous
  Country: US (occurrence: None)
  Receive Date: 20131011
  Receipt Date: 20131011
  Transmission Date: 20140711
  Serious: Yes (Life-Threatening, Hospitalization, Disabling, Other)
  Sender: FDA-Public Use
  Company Number: 1713747-2013-99957

PATIENT
  Age: 26 Year
  Sex: Female
  Weight: 78 kg

DRUGS (5)
  1. 0.9% SODIUM CHLORIDE [Suspect]
     Indication: FLUID REPLACEMENT
     Dates: start: 20120607
  2. COLLECTIVE CONCENTRATES (GRANUFLO AND NATURALYTE) [Concomitant]
  3. FRESENIUS 2008K [Concomitant]
  4. OPTIFLUX 180NRE [Concomitant]
  5. FRESENIUS COMBISET [Concomitant]

REACTIONS (1)
  - Cardio-respiratory arrest [None]
